FAERS Safety Report 17661978 (Version 3)
Quarter: 2020Q2

REPORT INFORMATION
  Report Type: Spontaneous
  Country: BR (occurrence: BR)
  Receive Date: 20200413
  Receipt Date: 20200608
  Transmission Date: 20200713
  Serious: Yes (Disabling, Other)
  Sender: FDA-Public Use
  Company Number: BR-ADVANZ PHARMA-202003002616

PATIENT

DRUGS (2)
  1. HYDROXYCHLOROQUINE [Suspect]
     Active Substance: HYDROXYCHLOROQUINE
     Indication: SYSTEMIC LUPUS ERYTHEMATOSUS
     Dosage: UNK, QOD TABLET
     Route: 065
  2. PREDNISONE. [Concomitant]
     Active Substance: PREDNISONE
     Dosage: UNK

REACTIONS (12)
  - Drug dependence [Unknown]
  - Seizure [Unknown]
  - Cardiac disorder [Unknown]
  - Bedridden [Unknown]
  - Blindness [Unknown]
  - General physical health deterioration [Unknown]
  - Gait inability [Unknown]
  - Coma [Unknown]
  - Systemic lupus erythematosus [Unknown]
  - Renal disorder [Unknown]
  - Corneal disorder [Unknown]
  - Asthenia [Unknown]
